FAERS Safety Report 10663432 (Version 1)
Quarter: 2014Q4

REPORT INFORMATION
  Report Type: Spontaneous
  Country: IN (occurrence: IN)
  Receive Date: 20141218
  Receipt Date: 20141218
  Transmission Date: 20150529
  Serious: Yes (Other)
  Sender: FDA-Public Use
  Company Number: IN-MYLANLABS-2014M1014649

PATIENT

DRUGS (2)
  1. CLOZAPINE. [Suspect]
     Active Substance: CLOZAPINE
     Indication: SCHIZOPHRENIA, PARANOID TYPE
     Dosage: 300 MG IN DAILY DIVIDED DOSES; DOSE REDUCED TO 250MG, AND THEN TO 200MG
     Route: 065
  2. NORMACALM PLUS [Suspect]
     Active Substance: TRIFLUOPERAZINE\TRIHEXYPHENIDYL
     Indication: SCHIZOPHRENIA, PARANOID TYPE
     Dosage: TRIFLUOPERAZINE/TRIHEXYPHENIDYL; 2.5MG/1MG 3 TIMES DAILY
     Route: 065

REACTIONS (5)
  - Neutropenia [Recovered/Resolved]
  - White blood cell count decreased [Recovered/Resolved]
  - Salivary hypersecretion [Recovering/Resolving]
  - Platelet count decreased [Not Recovered/Not Resolved]
  - Haemoglobin decreased [Not Recovered/Not Resolved]
